FAERS Safety Report 24580349 (Version 2)
Quarter: 2024Q4

REPORT INFORMATION
  Report Type: Spontaneous
  Country: NO (occurrence: NO)
  Receive Date: 20241105
  Receipt Date: 20241112
  Transmission Date: 20250114
  Serious: Yes (Hospitalization, Other)
  Sender: SANOFI AVENTIS
  Company Number: NO-SA-2024SA280044

PATIENT
  Age: 70 Year
  Sex: Male

DRUGS (8)
  1. INSULIN LISPRO [Suspect]
     Active Substance: INSULIN LISPRO
     Indication: Diabetes mellitus
     Dosage: 3 IU (AT BLOOD SUGAR OVER 10)
     Route: 065
  2. INSULIN LISPRO [Suspect]
     Active Substance: INSULIN LISPRO
     Dosage: 6 IU (AT BLOOD SUGAR OVER 13)
     Route: 065
  3. INSULIN LISPRO [Suspect]
     Active Substance: INSULIN LISPRO
     Dosage: 10 IU (AT BLOOD SUGAR OVER 16)
     Route: 065
     Dates: end: 2024
  4. TRESIBA [Concomitant]
     Active Substance: INSULIN DEGLUDEC
     Indication: Diabetes mellitus
     Dosage: UNK
  5. ELIQUIS [Concomitant]
     Active Substance: APIXABAN
     Indication: Thrombosis
     Dosage: 1 DF, BID
  6. LEVOTHYROXINE SODIUM [Concomitant]
     Active Substance: LEVOTHYROXINE SODIUM
     Indication: Metabolic disorder
     Dosage: 1 DF, QD (IN THE MORNING)
  7. TRAVATAN [Concomitant]
     Active Substance: TRAVOPROST
     Dosage: 1 DROP, QD (1 DROP IN THE EVENING IN THE RIGHT EYE)
  8. CANDESARTAN CILEXETIL\HYDROCHLOROTHIAZIDE [Concomitant]
     Active Substance: CANDESARTAN CILEXETIL\HYDROCHLOROTHIAZIDE
     Indication: Hypertension
     Dosage: 1 DF, QD (IN THE MORNING)

REACTIONS (3)
  - Foot fracture [Recovered/Resolved]
  - Diabetes mellitus inadequate control [Recovered/Resolved]
  - Drug ineffective [Recovered/Resolved]

NARRATIVE: CASE EVENT DATE: 20240101
